FAERS Safety Report 8432575-X (Version None)
Quarter: 2012Q2

REPORT INFORMATION
  Report Type: 
  Country: None (occurrence: None)
  Receive Date: 20120613
  Receipt Date: 20120604
  Transmission Date: 20120825
  Serious: Yes (Hospitalization)
  Sender: FDA-Public Use
  Company Number: US-AMGEN-USASP2012035085

PATIENT
  Age: 65 Year
  Sex: Female

DRUGS (6)
  1. ENBREL [Suspect]
     Indication: RHEUMATOID ARTHRITIS
     Dosage: UNK
  2. HUMIRA [Concomitant]
     Indication: RHEUMATOID ARTHRITIS
     Dosage: 40 MG, Q2WK
     Dates: start: 20111201
  3. PREDNISONE TAB [Concomitant]
     Dosage: UNK
  4. NAPROXEN [Concomitant]
     Dosage: UNK
  5. LEVOTHYROXINE SODIUM [Concomitant]
     Indication: HYPOTHYROIDISM
     Dosage: 0.88 MG, QD
  6. METHOTREXATE [Concomitant]
     Dosage: UNK

REACTIONS (5)
  - JOINT SWELLING [None]
  - TOXICITY TO VARIOUS AGENTS [None]
  - PYREXIA [None]
  - DYSPNOEA [None]
  - OEDEMA PERIPHERAL [None]
